FAERS Safety Report 13363311 (Version 1)
Quarter: 2017Q1

REPORT INFORMATION
  Report Type: Spontaneous
  Country: US (occurrence: US)
  Receive Date: 20170323
  Receipt Date: 20170323
  Transmission Date: 20170429
  Serious: No
  Sender: FDA-Public Use
  Company Number: None

PATIENT
  Age: 73 Year
  Sex: Female
  Weight: 81.65 kg

DRUGS (11)
  1. OMEPRAZOLE DR [Concomitant]
     Active Substance: OMEPRAZOLE
  2. OSTEO-BI-FLEX TRIPLE STRENGTH [Concomitant]
  3. AMLODIPINE BESYLATE. [Concomitant]
     Active Substance: AMLODIPINE BESYLATE
  4. FISH OIL [Concomitant]
     Active Substance: FISH OIL
  5. VITAMIN D3 [Concomitant]
     Active Substance: CHOLECALCIFEROL
  6. MAGNESIUM [Concomitant]
     Active Substance: MAGNESIUM
  7. LEVOTHYROXINE. [Concomitant]
     Active Substance: LEVOTHYROXINE
  8. CALCIUM [Concomitant]
     Active Substance: CALCIUM
  9. ESZOPICLONE 3MG TEVA [Suspect]
     Active Substance: ESZOPICLONE
     Indication: SLEEP DISORDER
     Dosage: 1 PILL AT BEDTIME BY MOUTH
     Route: 048
     Dates: start: 20161002, end: 20161006
  10. MULTIVITAMIN [Concomitant]
     Active Substance: VITAMINS
  11. HYDROXYZINE HCL 50MG TAB [Suspect]
     Active Substance: HYDROXYZINE HYDROCHLORIDE

REACTIONS (2)
  - Rash [None]
  - Pruritus [None]

NARRATIVE: CASE EVENT DATE: 20161002
